FAERS Safety Report 6383464-6 (Version None)
Quarter: 2009Q3

REPORT INFORMATION
  Report Type: 
  Country: None (occurrence: None)
  Receive Date: 20090928
  Receipt Date: 20090915
  Transmission Date: 20100115
  Serious: Yes (Other)
  Sender: FDA-Public Use
  Company Number: ENT 2009-0111

PATIENT
  Age: 83 Year
  Sex: Male

DRUGS (9)
  1. COMTAN [Suspect]
     Indication: PARKINSON'S DISEASE
     Dosage: 3 DF ORAL
     Route: 048
     Dates: start: 20090624, end: 20090627
  2. CABASER [Concomitant]
  3. CARBIDOPA AND LEVODOPA [Concomitant]
  4. CHLORMADINONE ACETATE TAB [Concomitant]
  5. ARICEPT [Concomitant]
  6. TICLOPIDINE HYDROCHLORIDE [Concomitant]
  7. PRAMIPEXOLE DIHYDROCHLORIDE [Concomitant]
  8. GEBEN [Concomitant]
  9. BROMELAIN [Concomitant]

REACTIONS (6)
  - BLOOD POTASSIUM INCREASED [None]
  - BLOOD UREA INCREASED [None]
  - EOSINOPHILIC PNEUMONIA [None]
  - HAEMOGLOBIN DECREASED [None]
  - NEUTROPHIL COUNT DECREASED [None]
  - RED BLOOD CELL COUNT DECREASED [None]
